FAERS Safety Report 6425779-9 (Version None)
Quarter: 2009Q4

REPORT INFORMATION
  Report Type: 
  Country: None (occurrence: None)
  Receive Date: 20091103
  Receipt Date: 20091028
  Transmission Date: 20100525
  Serious: Yes (Hospitalization)
  Sender: FDA-Public Use
  Company Number: ES-MERCK-0906USA00662

PATIENT
  Age: 43 Year
  Sex: Female

DRUGS (2)
  1. PRIMAXIN [Suspect]
     Indication: BETA HAEMOLYTIC STREPTOCOCCAL INFECTION
     Route: 042
  2. PRIMAXIN [Suspect]
     Indication: NECROTISING FASCIITIS
     Route: 042

REACTIONS (1)
  - DRUG INEFFECTIVE [None]
